FAERS Safety Report 4556360-4 (Version None)
Quarter: 2005Q1

REPORT INFORMATION
  Report Type: 
  Country: None (occurrence: None)
  Receive Date: 20050103
  Receipt Date: 20040812
  Transmission Date: 20050727
  Serious: Yes (Other)
  Sender: FDA-Public Use
  Company Number: 2004UW17202

PATIENT
  Age: 63 Year
  Sex: Female
  Weight: 81.1939 kg

DRUGS (4)
  1. CRESTOR [Suspect]
     Indication: BLOOD CHOLESTEROL INCREASED
     Dosage: 20 MG PO
     Route: 048
     Dates: start: 20040101
  2. ALTACE [Concomitant]
  3. ZETIA [Concomitant]
  4. LIPITOR [Concomitant]

REACTIONS (1)
  - TRICHORRHEXIS [None]
